FAERS Safety Report 19440901 (Version 1)
Quarter: 2021Q2

REPORT INFORMATION
  Report Type: Report from Study
  Country: None (occurrence: US)
  Receive Date: 20210621
  Receipt Date: 20210621
  Transmission Date: 20210717
  Serious: Yes (Other)
  Sender: FDA-Public Use
  Company Number: US-ABBVIE-21K-163-3923789-00

PATIENT
  Sex: Female

DRUGS (3)
  1. VENCLEXTA [Suspect]
     Active Substance: VENETOCLAX
     Dosage: TWO TABLETS ON DAY 2
     Route: 048
     Dates: start: 20210513, end: 20210513
  2. VENCLEXTA [Suspect]
     Active Substance: VENETOCLAX
     Dosage: 4 TABLETS DAILY ON DAYS 3 TO 28
     Route: 048
     Dates: start: 20210514
  3. VENCLEXTA [Suspect]
     Active Substance: VENETOCLAX
     Indication: ACUTE MYELOID LEUKAEMIA
     Dosage: ONE TABLET ON DAY 1
     Route: 048
     Dates: start: 20210512, end: 20210512

REACTIONS (6)
  - Muscular weakness [Not Recovered/Not Resolved]
  - Stomatitis [Recovering/Resolving]
  - Dyspnoea [Not Recovered/Not Resolved]
  - Fatigue [Not Recovered/Not Resolved]
  - Mouth ulceration [Not Recovered/Not Resolved]
  - Platelet transfusion [Unknown]

NARRATIVE: CASE EVENT DATE: 2021
